FAERS Safety Report 18216746 (Version 3)
Quarter: 2020Q3

REPORT INFORMATION
  Report Type: Spontaneous
  Country: SE (occurrence: SE)
  Receive Date: 20200901
  Receipt Date: 20200915
  Transmission Date: 20201103
  Serious: Yes (Life-Threatening, Hospitalization, Other)
  Sender: FDA-Public Use
  Company Number: SE-AUROBINDO-AUR-APL-2020-045583

PATIENT
  Age: 31 Year
  Sex: Female
  Weight: 53 kg

DRUGS (2)
  1. SERTRALINE [Suspect]
     Active Substance: SERTRALINE HYDROCHLORIDE
     Indication: ANXIETY
     Dosage: 25 MILLIGRAM, ONCE A DAY
     Route: 065
  2. SERTRALINE [Suspect]
     Active Substance: SERTRALINE HYDROCHLORIDE
     Indication: DEPRESSION
     Dosage: UNK
     Route: 065

REACTIONS (8)
  - Fatigue [Unknown]
  - HELLP syndrome [Recovered/Resolved with Sequelae]
  - Caesarean section [Unknown]
  - Discomfort [Unknown]
  - Swelling [Unknown]
  - Abdominal pain lower [Unknown]
  - Maternal exposure during pregnancy [Unknown]
  - Nausea [Unknown]

NARRATIVE: CASE EVENT DATE: 202007
